FAERS Safety Report 4786871-8 (Version None)
Quarter: 2005Q3

REPORT INFORMATION
  Report Type: 
  Country: None (occurrence: None)
  Receive Date: 20050930
  Receipt Date: 20050916
  Transmission Date: 20060218
  Serious: Yes (Hospitalization)
  Sender: FDA-Public Use
  Company Number: ZICO001295

PATIENT
  Age: 48 Year
  Sex: Female

DRUGS (16)
  1. PRIALT [Suspect]
     Dosage: 0.208 MCG/ML INTRATHECAL
     Route: 037
     Dates: start: 20050101, end: 20050902
  2. OXYCODONE HCL [Concomitant]
  3. VALIUM [Concomitant]
  4. CLONAZEPAM [Concomitant]
  5. ESTRADIOL [Concomitant]
  6. RELAFEN [Concomitant]
  7. DETROL LA [Concomitant]
  8. ZETIA [Concomitant]
  9. LORATADINE [Concomitant]
  10. TRICOR [Concomitant]
  11. COLACE (DOCUSATE) [Concomitant]
  12. NEXIUM [Concomitant]
  13. SEREVENT DISKUS (SALMETEROL) [Concomitant]
  14. ALBUTEROL [Concomitant]
  15. IMITREX [Concomitant]
  16. POTASSIUM (POTASSIUM ACETATE) [Concomitant]

REACTIONS (8)
  - CATHETER SITE ERYTHEMA [None]
  - CATHETER SITE PAIN [None]
  - CHILLS [None]
  - CONDITION AGGRAVATED [None]
  - MUSCLE SPASMS [None]
  - PAIN [None]
  - PYREXIA [None]
  - RASH [None]
